FAERS Safety Report 5584702-X (Version None)
Quarter: 2008Q1

REPORT INFORMATION
  Report Type: 
  Country: None (occurrence: None)
  Receive Date: 20080108
  Receipt Date: 20071227
  Transmission Date: 20080703
  Serious: Yes (Death)
  Sender: FDA-Public Use
  Company Number: BR-PFIZER INC-2008000395

PATIENT
  Sex: Female
  Weight: 48 kg

DRUGS (4)
  1. EXUBERA [Suspect]
     Indication: DIABETES MELLITUS
     Route: 055
  2. LANTUS [Concomitant]
     Dates: start: 20060701
  3. PANCREATIN TRIPLE STRENGTH CAP [Concomitant]
     Dates: start: 20060701
  4. CHEMOTHERAPY NOS [Concomitant]

REACTIONS (1)
  - DEATH [None]
